FAERS Safety Report 8807283 (Version 2)
Quarter: 2013Q3

REPORT INFORMATION
  Report Type: Spontaneous
  Country: DE (occurrence: DE)
  Receive Date: 20120925
  Receipt Date: 20130703
  Transmission Date: 20140515
  Serious: Yes (Hospitalization)
  Sender: FDA-Public Use
  Company Number: DE-B.I. PHARMACEUTICALS,INC./RIDGEFIELD-2012-DE-02241DE

PATIENT
  Age: 62 Year
  Sex: Male
  Weight: 62 kg

DRUGS (10)
  1. SPIRIVA [Suspect]
     Indication: MALIGNANT MELANOMA
     Dosage: 18 MCG
     Dates: start: 200910, end: 20120130
  2. SPIRIVA [Suspect]
     Dosage: 36 MCG
     Dates: start: 20120131
  3. VEMURAFENIB [Suspect]
     Indication: MALIGNANT MELANOMA
     Dosage: 1920 MG
     Route: 048
     Dates: start: 20120125
  4. VEMURAFENIB [Suspect]
     Dosage: 1440 MG
     Route: 048
     Dates: start: 20120207
  5. FORMOTEROL FUMARATE [Suspect]
     Indication: MALIGNANT MELANOMA
     Dosage: 24 MCG
     Dates: start: 200910, end: 20120130
  6. FORMOTEROL FUMARATE [Suspect]
     Dosage: 48 MCG
     Dates: start: 20120131, end: 20120304
  7. BUDESONIDE [Suspect]
     Indication: MALIGNANT MELANOMA
     Dosage: 150 MG
     Dates: start: 200910, end: 20120130
  8. BUDESONIDE [Suspect]
     Dosage: 450 MG
     Dates: start: 20120131, end: 20120222
  9. THEOPHYLLIN [Suspect]
     Indication: MALIGNANT MELANOMA
     Dosage: 200 MG
     Dates: start: 200910, end: 20120130
  10. THEOPHYLLIN [Suspect]
     Dosage: 500 MG
     Dates: start: 20120131, end: 20120304

REACTIONS (1)
  - Chronic obstructive pulmonary disease [Recovered/Resolved]
